FAERS Safety Report 11325936 (Version 2)
Quarter: 2015Q3

REPORT INFORMATION
  Report Type: Spontaneous
  Country: US (occurrence: None)
  Receive Date: 20150729
  Receipt Date: 20150820
  Transmission Date: 20151125
  Serious: Yes (Death, Other)
  Sender: FDA-Public Use
  Company Number: ADR-2015-01415

PATIENT
  Age: 57 Year
  Sex: Male

DRUGS (7)
  1. METHYLPREDNISOLONE. [Suspect]
     Active Substance: METHYLPREDNISOLONE
  2. LORAZEPAM (INTRAVENOUS) [Suspect]
     Active Substance: LORAZEPAM
  3. BACLOFEN. [Suspect]
     Active Substance: BACLOFEN
     Indication: HICCUPS
  4. MORPHINE [Suspect]
     Active Substance: MORPHINE
     Dosage: MORPHINE 2 MG IV EVERY 6 HOURS (Q6H)
     Route: 042
  5. AMLODIPINE [Suspect]
     Active Substance: AMLODIPINE BESYLATE
  6. METOPROLOL [Suspect]
     Active Substance: METOPROLOL
  7. PANTOPRAZOLE [Suspect]
     Active Substance: PANTOPRAZOLE SODIUM

REACTIONS (8)
  - Tardive dyskinesia [None]
  - Delirium [None]
  - Sedation [None]
  - Renal impairment [None]
  - Skin abrasion [None]
  - Restlessness [None]
  - Therapeutic response decreased [None]
  - Withdrawal syndrome [None]

NARRATIVE: CASE EVENT DATE: 20150326
